FAERS Safety Report 11888141 (Version 3)
Quarter: 2016Q1

REPORT INFORMATION
  Report Type: Spontaneous
  Country: US (occurrence: US)
  Receive Date: 20160105
  Receipt Date: 20160205
  Transmission Date: 20160526
  Serious: No
  Sender: FDA-Public Use
  Company Number: US-ROXANE LABORATORIES, INC.-2015-RO-02149RO

PATIENT
  Age: 28 Year
  Sex: Male
  Weight: 77.11 kg

DRUGS (3)
  1. METHADONE HCL ORAL CONCENTRATE USP, 10 MG/ML (CHERRY) [Suspect]
     Active Substance: METHADONE HYDROCHLORIDE
     Dosage: 70 MG
     Route: 048
     Dates: start: 20151209
  2. METHADONE HCL ORAL CONCENTRATE USP, 10 MG/ML (CHERRY) [Suspect]
     Active Substance: METHADONE HYDROCHLORIDE
     Indication: PRODUCT USED FOR UNKNOWN INDICATION
     Dosage: 60 MG
     Route: 048
     Dates: start: 20151203
  3. METHADONE HCL ORAL CONCENTRATE USP, 10 MG/ML (CHERRY) [Suspect]
     Active Substance: METHADONE HYDROCHLORIDE
     Dosage: 65 MG
     Route: 048
     Dates: start: 20151229

REACTIONS (4)
  - Lethargy [Recovered/Resolved]
  - Nausea [Recovered/Resolved]
  - Drug ineffective [Not Recovered/Not Resolved]
  - Product quality issue [Unknown]

NARRATIVE: CASE EVENT DATE: 20151209
